FAERS Safety Report 4543507-9 (Version None)
Quarter: 2004Q4

REPORT INFORMATION
  Report Type: 
  Country: None (occurrence: None)
  Receive Date: 20041229
  Receipt Date: 20041229
  Transmission Date: 20050328
  Serious: Yes (Hospitalization, Disabling)
  Sender: FDA-Public Use
  Company Number: None

PATIENT
  Age: 73 Year
  Sex: Female
  Weight: 63.05 kg

DRUGS (6)
  1. VIOXX [Suspect]
     Indication: ARTHRITIS
     Dosage: 25 MG ONCE DAILY
     Dates: start: 20020518, end: 20040930
  2. TENORMIN [Concomitant]
  3. LIPITOR [Concomitant]
  4. DIOVAN [Concomitant]
  5. NEXIUM [Concomitant]
  6. ADVIL [Concomitant]

REACTIONS (2)
  - ANTERIOR SPINAL ARTERY SYNDROME [None]
  - DIPLEGIA [None]
